FAERS Safety Report 10023402 (Version 1)
Quarter: 2014Q1

REPORT INFORMATION
  Report Type: Report from Study
  Country: US (occurrence: US)
  Receive Date: 20140320
  Receipt Date: 20140320
  Transmission Date: 20141002
  Serious: Yes (Other)
  Sender: FDA-Public Use
  Company Number: US-ROCHE-1342495

PATIENT
  Sex: 0

DRUGS (2)
  1. HERCEPTIN [Suspect]
     Indication: BREAST CANCER
     Dosage: THERAPY DATE: 05/MAY/2011 (CYCLE 8), 26/MAY/2011 (CYCLE 9), 16/JUN/2011 (CYCLE 10), 14/JUL/2011 (CYC
     Route: 042
  2. HERCEPTIN [Suspect]
     Route: 042

REACTIONS (1)
  - Weight decreased [Unknown]
